FAERS Safety Report 4817676-7 (Version None)
Quarter: 2005Q3

REPORT INFORMATION
  Report Type: 
  Country: None (occurrence: None)
  Receive Date: 20050929
  Receipt Date: 20050603
  Transmission Date: 20060218
  Serious: No
  Sender: FDA-Public Use
  Company Number: 05P-163-0302180-00

PATIENT
  Age: 66 Year
  Sex: Female
  Weight: 44.4525 kg

DRUGS (2)
  1. HUMIRA [Suspect]
     Indication: RHEUMATOID ARTHRITIS
     Dosage: 40 MG, 1 IN 2 WK, SUBCUTANEOUS
     Route: 058
     Dates: start: 20040101
  2. FATEO [Concomitant]

REACTIONS (5)
  - COUGH [None]
  - LUNG DISORDER [None]
  - PROTEIN TOTAL [None]
  - RECURRING SKIN BOILS [None]
  - RHINORRHOEA [None]
